FAERS Safety Report 12121914 (Version 1)
Quarter: 2016Q1

REPORT INFORMATION
  Report Type: Spontaneous
  Country: US (occurrence: US)
  Receive Date: 20160226
  Receipt Date: 20160226
  Transmission Date: 20160526
  Serious: No
  Sender: FDA-Public Use
  Company Number: US-ALLERGAN-1515020US

PATIENT
  Age: 62 Year
  Sex: Female
  Weight: 54.42 kg

DRUGS (4)
  1. CHOLESTIN [Concomitant]
     Indication: BLOOD CHOLESTEROL INCREASED
  2. PRILOSEC [Concomitant]
     Active Substance: OMEPRAZOLE MAGNESIUM
     Indication: GASTROOESOPHAGEAL REFLUX DISEASE
     Route: 048
  3. CORGARD [Concomitant]
     Active Substance: NADOLOL
     Indication: HYPERTENSION
     Route: 048
  4. REFRESH OPTIVE [Suspect]
     Active Substance: CARBOXYMETHYLCELLULOSE SODIUM\GLYCERIN
     Indication: DRY EYE
     Dosage: 2 G, QD
     Route: 047
     Dates: start: 20150731, end: 20150731

REACTIONS (1)
  - Vision blurred [Not Recovered/Not Resolved]

NARRATIVE: CASE EVENT DATE: 20150731
